FAERS Safety Report 5133215-8 (Version None)
Quarter: 2006Q4

REPORT INFORMATION
  Report Type: 
  Country: None (occurrence: None)
  Receive Date: 20061018
  Receipt Date: 20061003
  Transmission Date: 20070319
  Serious: Yes (Hospitalization)
  Sender: FDA-Public Use
  Company Number: 2006BI013927

PATIENT
  Age: 59 Year
  Sex: Male

DRUGS (7)
  1. ZEVALIN [Suspect]
     Indication: BONE MARROW CONDITIONING REGIMEN
     Dosage: 0.4 MCI/KG; 1X; IV
     Route: 042
  2. RITUXIMAB [Concomitant]
  3. CARMUSTINE [Concomitant]
  4. ETOPOSIDE [Concomitant]
  5. CYTARABINE [Concomitant]
  6. MELPHALAN [Concomitant]
  7. ACETAMINOPHEN [Concomitant]

REACTIONS (10)
  - COUGH [None]
  - DRUG TOXICITY [None]
  - ENGRAFTMENT SYNDROME [None]
  - HAEMOGLOBIN DECREASED [None]
  - LUNG INFILTRATION [None]
  - PLATELET COUNT DECREASED [None]
  - POST PROCEDURAL COMPLICATION [None]
  - PULMONARY TOXICITY [None]
  - PYREXIA [None]
  - STEM CELL TRANSPLANT [None]
